FAERS Safety Report 7047305-6 (Version None)
Quarter: 2010Q4

REPORT INFORMATION
  Report Type: 
  Country: None (occurrence: None)
  Receive Date: 20101015
  Receipt Date: 20101004
  Transmission Date: 20110411
  Serious: Yes (Other)
  Sender: FDA-Public Use
  Company Number: PHHY2010DK25196

PATIENT
  Sex: Female

DRUGS (3)
  1. TEGRETOL [Suspect]
     Dosage: UNK
     Route: 048
  2. TRUXAL [Suspect]
     Route: 048
  3. PROZIL [Suspect]
     Route: 048

REACTIONS (11)
  - ASTHENIA [None]
  - CARCINOID SYNDROME [None]
  - CARDIAC DISORDER [None]
  - CONVULSION [None]
  - ERYTHEMA [None]
  - FEELING HOT [None]
  - HEART RATE INCREASED [None]
  - HYPERHIDROSIS [None]
  - PALPITATIONS [None]
  - SUPRAVENTRICULAR TACHYCARDIA [None]
  - SYNCOPE [None]
